FAERS Safety Report 7698805-7 (Version None)
Quarter: 2011Q3

REPORT INFORMATION
  Report Type: 
  Country: None (occurrence: None)
  Receive Date: 20110819
  Receipt Date: 20110815
  Transmission Date: 20111222
  Serious: Yes (Other)
  Sender: FDA-Public Use
  Company Number: US-SANOFI-AVENTIS-2011SA052246

PATIENT
  Age: 53 Year
  Sex: Male

DRUGS (2)
  1. PLAVIX [Suspect]
     Route: 048
  2. PLAVIX [Suspect]
     Route: 048
     Dates: start: 20030101, end: 20090930

REACTIONS (4)
  - HAEMORRHAGE [None]
  - BLINDNESS [None]
  - HAEMOGLOBIN DECREASED [None]
  - URINE OUTPUT DECREASED [None]
